FAERS Safety Report 26002804 (Version 3)
Quarter: 2025Q4

REPORT INFORMATION
  Report Type: Spontaneous
  Country: US (occurrence: US)
  Receive Date: 20251106
  Receipt Date: 20251114
  Transmission Date: 20260118
  Serious: No
  Sender: Haleon PLC
  Company Number: US-HALEON-2268777

PATIENT

DRUGS (1)
  1. VOLTAREN ARTHRITIS PAIN [Suspect]
     Active Substance: DICLOFENAC SODIUM
     Indication: Product used for unknown indication

REACTIONS (5)
  - Product use in unapproved indication [Unknown]
  - Product primary packaging issue [Unknown]
  - Product administered at inappropriate site [Unknown]
  - Product leakage [Unknown]
  - Product closure removal difficult [Unknown]
